FAERS Safety Report 6056530-2 (Version None)
Quarter: 2009Q1

REPORT INFORMATION
  Report Type: 
  Country: None (occurrence: None)
  Receive Date: 20090129
  Receipt Date: 20090122
  Transmission Date: 20090719
  Serious: Yes (Other)
  Sender: FDA-Public Use
  Company Number: GR-ASTRAZENECA-2009SE00485

PATIENT
  Age: 57 Year
  Sex: Male
  Weight: 95 kg

DRUGS (8)
  1. CRESTOR [Suspect]
     Indication: HYPERLIPIDAEMIA
     Route: 048
     Dates: start: 20050701
  2. SINGULAIR [Suspect]
     Indication: ASTHMA
     Route: 048
     Dates: start: 20080828, end: 20080920
  3. SYMBICORT [Concomitant]
     Route: 055
  4. DILTIAZEM HCL [Concomitant]
     Route: 048
  5. IRBESARTAN [Concomitant]
     Route: 048
  6. SALOSPIR [Concomitant]
     Route: 048
  7. GLUCOPHAGE [Concomitant]
     Route: 048
  8. HUMULIN M3 [Concomitant]

REACTIONS (1)
  - MUSCLE SPASMS [None]
